FAERS Safety Report 23841488 (Version 1)
Quarter: 2024Q2

REPORT INFORMATION
  Report Type: Spontaneous
  Country: US (occurrence: None)
  Receive Date: 20240509
  Receipt Date: 20240509
  Transmission Date: 20240716
  Serious: Yes (Hospitalization)
  Sender: FDA-Public Use
  Company Number: None

PATIENT
  Age: 81 Year
  Sex: Male
  Weight: 45 kg

DRUGS (1)
  1. DOXYCYCLINE HYCLATE [Suspect]
     Active Substance: DOXYCYCLINE HYCLATE
     Dosage: 50 MG EVERY DAY PO
     Route: 048
     Dates: start: 20190117, end: 20240214

REACTIONS (8)
  - Vision blurred [None]
  - Dizziness [None]
  - Headache [None]
  - Hypoaesthesia [None]
  - Optic atrophy [None]
  - Vertigo [None]
  - Visual impairment [None]
  - Papilloedema [None]

NARRATIVE: CASE EVENT DATE: 20240214
